FAERS Safety Report 11781896 (Version 2)
Quarter: 2015Q4

REPORT INFORMATION
  Report Type: Spontaneous
  Country: DE (occurrence: DE)
  Receive Date: 20151126
  Receipt Date: 20151208
  Transmission Date: 20160305
  Serious: Yes (Hospitalization)
  Sender: FDA-Public Use
  Company Number: US-ASTRAZENECA-2015SF19024

PATIENT
  Age: 184 Day
  Sex: Female

DRUGS (3)
  1. SYNAGIS [Suspect]
     Active Substance: PALIVIZUMAB
     Indication: HYPOXIC-ISCHAEMIC ENCEPHALOPATHY
     Route: 030
     Dates: start: 20151106
  2. SYNAGIS [Suspect]
     Active Substance: PALIVIZUMAB
     Indication: PREMATURE BABY
     Route: 030
     Dates: start: 20151106
  3. SYNAGIS [Suspect]
     Active Substance: PALIVIZUMAB
     Indication: NERVOUS SYSTEM DISORDER
     Route: 030
     Dates: start: 20151106

REACTIONS (2)
  - Liver function test abnormal [Recovered/Resolved]
  - Pyrexia [Recovered/Resolved]

NARRATIVE: CASE EVENT DATE: 20151110
